FAERS Safety Report 15318744 (Version 1)
Quarter: 2018Q3

REPORT INFORMATION
  Report Type: Spontaneous
  Country: US (occurrence: US)
  Receive Date: 20180818
  Receipt Date: 20180818
  Transmission Date: 20181010
  Serious: Yes (Hospitalization, Disabling, Other)
  Sender: FDA-Public Use
  Company Number: None

PATIENT
  Age: 80 Year
  Sex: Male
  Weight: 99 kg

DRUGS (7)
  1. TOPROL XL [Suspect]
     Active Substance: METOPROLOL SUCCINATE
     Indication: HYPERTENSION
     Dosage: ?          QUANTITY:3 TABLET(S);?
     Route: 048
  2. TYLENOL [Concomitant]
     Active Substance: ACETAMINOPHEN
  3. IRON [Concomitant]
     Active Substance: IRON
  4. ONE?A?DAY NOS [Concomitant]
     Active Substance: MINERALS\VITAMINS
  5. VITAMIN B12 [Concomitant]
     Active Substance: CYANOCOBALAMIN
  6. ASPIRIN. [Concomitant]
     Active Substance: ASPIRIN
  7. TOPROL XL [Suspect]
     Active Substance: METOPROLOL SUCCINATE
     Indication: CARDIAC DISORDER
     Dosage: ?          QUANTITY:3 TABLET(S);?
     Route: 048

REACTIONS (6)
  - Insomnia [None]
  - Swelling [None]
  - Dyspnoea [None]
  - Weight increased [None]
  - Narcolepsy [None]
  - Dizziness [None]

NARRATIVE: CASE EVENT DATE: 20180704
